FAERS Safety Report 5931331-1 (Version None)
Quarter: 2008Q4

REPORT INFORMATION
  Report Type: 
  Country: None (occurrence: None)
  Receive Date: 20081027
  Receipt Date: 20081016
  Transmission Date: 20090506
  Serious: Yes (Other)
  Sender: FDA-Public Use
  Company Number: CO-MERCK-0810COL00006

PATIENT
  Age: 8 Year
  Sex: Female

DRUGS (2)
  1. SINGULAIR [Suspect]
     Indication: ASTHMA
     Route: 048
     Dates: start: 20050101, end: 20060101
  2. LEUPROLIDE ACETATE [Concomitant]
     Indication: PRECOCIOUS PUBERTY
     Route: 065
     Dates: start: 20041201

REACTIONS (3)
  - ANXIETY [None]
  - IRRITABILITY [None]
  - SUICIDE ATTEMPT [None]
